FAERS Safety Report 11742381 (Version 8)
Quarter: 2018Q1

REPORT INFORMATION
  Report Type: Spontaneous
  Country: FR (occurrence: FR)
  Receive Date: 20151116
  Receipt Date: 20180302
  Transmission Date: 20180508
  Serious: Yes (Life-Threatening, Other)
  Sender: FDA-Public Use
  Company Number: FR-TEVA-607608ISR

PATIENT
  Sex: Male
  Weight: 82 kg

DRUGS (6)
  1. KREDEX 6.5 MG [Concomitant]
     Route: 065
  2. KARDEGIC 300 [Concomitant]
     Route: 065
  3. RAMIPRIL. [Concomitant]
     Active Substance: RAMIPRIL
     Route: 065
  4. TAHOR [Concomitant]
     Active Substance: ATORVASTATIN CALCIUM
     Route: 065
  5. ISOTRETINOINE TEVA 20 MG [Suspect]
     Active Substance: ISOTRETINOIN
     Indication: RETINAL DETACHMENT
     Dosage: 1 DOSAGE FORMS DAILY;
     Route: 048
     Dates: start: 20120320, end: 20120420
  6. COVERSYL [Concomitant]
     Active Substance: PERINDOPRIL
     Route: 065

REACTIONS (19)
  - Suicide attempt [Not Recovered/Not Resolved]
  - Constipation [Not Recovered/Not Resolved]
  - Physical disability [Not Recovered/Not Resolved]
  - Back pain [Not Recovered/Not Resolved]
  - Arthralgia [Unknown]
  - Gait inability [Not Recovered/Not Resolved]
  - Acne [Not Recovered/Not Resolved]
  - Affective disorder [Not Recovered/Not Resolved]
  - Vertigo [Not Recovered/Not Resolved]
  - Memory impairment [Not Recovered/Not Resolved]
  - Visual acuity reduced [Recovering/Resolving]
  - Myalgia [Not Recovered/Not Resolved]
  - Depression [Not Recovered/Not Resolved]
  - Hallucination, auditory [Not Recovered/Not Resolved]
  - Cognitive disorder [Not Recovered/Not Resolved]
  - Diarrhoea haemorrhagic [Unknown]
  - Headache [Not Recovered/Not Resolved]
  - Aggression [Not Recovered/Not Resolved]
  - Irritability [Not Recovered/Not Resolved]

NARRATIVE: CASE EVENT DATE: 2012
